FAERS Safety Report 7981915-4 (Version None)
Quarter: 2011Q4

REPORT INFORMATION
  Report Type: 
  Country: None (occurrence: None)
  Receive Date: 20111215
  Receipt Date: 20111205
  Transmission Date: 20120403
  Serious: Yes (Hospitalization)
  Sender: FDA-Public Use
  Company Number: US-BAYER-2011-041254

PATIENT
  Age: 32 Year
  Sex: Female
  Weight: 77.551 kg

DRUGS (8)
  1. YASMIN [Suspect]
     Indication: DYSFUNCTIONAL UTERINE BLEEDING
  2. HUMALOG [Concomitant]
     Indication: DIABETES MELLITUS
     Dosage: 110 U/ML, QD
  3. YAZ [Suspect]
     Indication: CONTRACEPTION
     Dosage: UNK
     Dates: start: 20070901, end: 20081101
  4. YAZ [Suspect]
     Indication: DYSFUNCTIONAL UTERINE BLEEDING
  5. MULTI-VITAMIN [Concomitant]
  6. HYDROXYCUT [Concomitant]
     Indication: WEIGHT INCREASED
  7. YASMIN [Suspect]
     Indication: CONTRACEPTION
     Dosage: UNK
     Dates: start: 20031201, end: 20070701
  8. ASPIRIN [Concomitant]
     Indication: DIABETES MELLITUS
     Dosage: 81 MG, UNK

REACTIONS (7)
  - ANXIETY [None]
  - CHEST PAIN [None]
  - DEPRESSION [None]
  - INJURY [None]
  - MYOCARDIAL INFARCTION [None]
  - EMOTIONAL DISTRESS [None]
  - GENERAL PHYSICAL HEALTH DETERIORATION [None]
